FAERS Safety Report 6465360-9 (Version None)
Quarter: 2009Q4

REPORT INFORMATION
  Report Type: 
  Country: None (occurrence: None)
  Receive Date: 20091119
  Receipt Date: 20090918
  Transmission Date: 20100525
  Serious: No
  Sender: FDA-Public Use
  Company Number: WAES0909USA02815

PATIENT
  Age: 55 Year
  Sex: Female

DRUGS (9)
  1. JANUVIA [Suspect]
     Indication: TYPE 2 DIABETES MELLITUS
     Dosage: PO
     Route: 048
     Dates: start: 20090718, end: 20090807
  2. JANUVIA [Suspect]
     Indication: TYPE 2 DIABETES MELLITUS
     Dosage: PO
     Route: 048
     Dates: start: 20090814, end: 20090915
  3. CRESTOR [Concomitant]
  4. GLUMETZA [Concomitant]
  5. LEVEMIR [Concomitant]
  6. NOVOLOG [Concomitant]
  7. GLIMEPIRIDE [Concomitant]
  8. METOPROLOL [Concomitant]
  9. RAMIPRIL [Concomitant]

REACTIONS (4)
  - DYSPNOEA [None]
  - FEELING ABNORMAL [None]
  - LYMPHADENOPATHY [None]
  - RHINITIS [None]
